FAERS Safety Report 24062759 (Version 1)
Quarter: 2024Q3

REPORT INFORMATION
  Report Type: Spontaneous
  Country: JP (occurrence: JP)
  Receive Date: 20240708
  Receipt Date: 20240708
  Transmission Date: 20241016
  Serious: Yes (Other)
  Sender: BAUSCH AND LOMB
  Company Number: JP-MLMSERVICE-20240627-PI112237-00117-1

PATIENT
  Age: 40 Year
  Sex: Female
  Weight: 43 kg

DRUGS (5)
  1. DEXAMETHASONE [Suspect]
     Active Substance: DEXAMETHASONE
     Indication: COVID-19
     Route: 065
     Dates: start: 2022
  2. PREDNISOLONE [Suspect]
     Active Substance: PREDNISOLONE
     Indication: Immunosuppressant drug therapy
     Route: 065
  3. EVEROLIMUS [Suspect]
     Active Substance: EVEROLIMUS
     Indication: Immunosuppressant drug therapy
     Route: 065
  4. TACROLIMUS [Suspect]
     Active Substance: TACROLIMUS
     Indication: Immunosuppressant drug therapy
     Route: 065
  5. REMDESIVIR [Concomitant]
     Active Substance: REMDESIVIR
     Indication: Immunosuppressant drug therapy
     Dates: start: 2022

REACTIONS (6)
  - Endocarditis [Recovering/Resolving]
  - Corynebacterium infection [Recovering/Resolving]
  - Sepsis [Recovering/Resolving]
  - Cerebral haemorrhage [Recovering/Resolving]
  - Aortic valve incompetence [Recovering/Resolving]
  - Acute respiratory distress syndrome [Recovering/Resolving]

NARRATIVE: CASE EVENT DATE: 20220101
